FAERS Safety Report 5026409-3 (Version None)
Quarter: 2006Q2

REPORT INFORMATION
  Report Type: 
  Country: None (occurrence: None)
  Receive Date: 20060426
  Receipt Date: 20060314
  Transmission Date: 20061013
  Serious: Yes (Other)
  Sender: FDA-Public Use
  Company Number: 2006037352

PATIENT
  Age: 82 Year
  Sex: Male

DRUGS (8)
  1. LYRICA [Suspect]
     Indication: DIABETIC NEUROPATHY
     Dosage: 50 MG (50 MG, 1 IN 1 D)
     Dates: start: 20060101
  2. ELAVIL [Concomitant]
  3. NEURONTIN [Concomitant]
  4. LESCOL [Concomitant]
  5. INSULIN [Concomitant]
  6. CARDURA [Concomitant]
  7. AVAPRO [Concomitant]
  8. VITAMINS (VITAMINS) [Concomitant]

REACTIONS (1)
  - VISUAL DISTURBANCE [None]
